FAERS Safety Report 5100601-1 (Version None)
Quarter: 2006Q3

REPORT INFORMATION
  Report Type: 
  Country: None (occurrence: None)
  Receive Date: 20060907
  Receipt Date: 20060907
  Transmission Date: 20061208
  Serious: Yes (Life-Threatening, Hospitalization, Other)
  Sender: FDA-Public Use
  Company Number: None

PATIENT
  Age: 52 Year
  Sex: Female

DRUGS (2)
  1. LEVLITE [Suspect]
     Indication: MENORRHAGIA
     Dosage: 30 DAY SAMPLES    1 PER DAY   PO
     Route: 048
     Dates: start: 20060220, end: 20060318
  2. LEVLITE [Suspect]
     Indication: MENSTRUATION IRREGULAR
     Dosage: 30 DAY SAMPLES    1 PER DAY   PO
     Route: 048
     Dates: start: 20060220, end: 20060318

REACTIONS (10)
  - ACTIVITIES OF DAILY LIVING IMPAIRED [None]
  - ANXIETY [None]
  - CARDIAC DISORDER [None]
  - CHEST DISCOMFORT [None]
  - DEPRESSION [None]
  - FATIGUE [None]
  - IMPAIRED WORK ABILITY [None]
  - PAIN IN EXTREMITY [None]
  - PULMONARY EMBOLISM [None]
  - THROMBOSIS [None]
